FAERS Safety Report 12158861 (Version 1)
Quarter: 2016Q1

REPORT INFORMATION
  Report Type: Spontaneous
  Country: US (occurrence: US)
  Receive Date: 20160308
  Receipt Date: 20160308
  Transmission Date: 20160526
  Serious: No
  Sender: FDA-Public Use
  Company Number: US-JNJFOC-20160212979

PATIENT
  Age: 13 Month
  Sex: Male
  Weight: 12.7 kg

DRUGS (2)
  1. CHILDRENS TYLENOL [Suspect]
     Active Substance: ACETAMINOPHEN
     Indication: VIRAL INFECTION
     Dosage: 1 TEASPOON EVERY 6 HOURS-ON AND OFF WHEN NEEDED
     Route: 048
     Dates: start: 20160204
  2. CHILDRENS TYLENOL [Suspect]
     Active Substance: ACETAMINOPHEN
     Indication: PYREXIA
     Dosage: 1 TEASPOON EVERY 6 HOURS-ON AND OFF WHEN NEEDED
     Route: 048
     Dates: start: 20160204

REACTIONS (2)
  - Off label use [Unknown]
  - Product use issue [Unknown]
